FAERS Safety Report 11029804 (Version 3)
Quarter: 2015Q4

REPORT INFORMATION
  Report Type: Report from Study
  Country: US (occurrence: US)
  Receive Date: 20150415
  Receipt Date: 20151030
  Transmission Date: 20160304
  Serious: Yes (Other)
  Sender: FDA-Public Use
  Company Number: US-BIOGENIDEC-2015BI042838

PATIENT
  Age: 35 Year
  Sex: Male

DRUGS (4)
  1. TEGRETOL XL [Concomitant]
     Route: 048
     Dates: start: 201509
  2. RESTORIL [Concomitant]
     Active Substance: TEMAZEPAM
     Indication: SLEEP DISORDER
     Dates: start: 201509
  3. PREDNISONE. [Concomitant]
     Active Substance: PREDNISONE
  4. TYSABRI [Suspect]
     Active Substance: NATALIZUMAB
     Indication: MULTIPLE SCLEROSIS
     Route: 042
     Dates: start: 20120801, end: 20150223

REACTIONS (2)
  - Immune reconstitution inflammatory syndrome [Not Recovered/Not Resolved]
  - Progressive multifocal leukoencephalopathy [Not Recovered/Not Resolved]

NARRATIVE: CASE EVENT DATE: 20150331
